FAERS Safety Report 15178136 (Version 1)
Quarter: 2018Q3

REPORT INFORMATION
  Report Type: Spontaneous
  Country: FR (occurrence: FR)
  Receive Date: 20180721
  Receipt Date: 20180721
  Transmission Date: 20181010
  Serious: Yes (Life-Threatening, Hospitalization, Other)
  Sender: FDA-Public Use
  Company Number: FR-AUROBINDO-AUR-APL-2018-036457

PATIENT
  Age: 59 Year
  Sex: Female
  Weight: 40 kg

DRUGS (6)
  1. OXALIPLATIN. [Suspect]
     Active Substance: OXALIPLATIN
     Indication: OESOPHAGEAL SQUAMOUS CELL CARCINOMA
     Dosage: UNKNOWN
     Route: 042
     Dates: start: 20171201, end: 20171201
  2. FLUOROURACILE [Suspect]
     Active Substance: FLUOROURACIL
     Indication: OESOPHAGEAL SQUAMOUS CELL CARCINOMA
     Dosage: 550 MG
     Route: 042
     Dates: start: 20171201, end: 20171201
  3. ZOPHREN                            /00955301/ [Suspect]
     Active Substance: ONDANSETRON
     Indication: PROPHYLAXIS OF NAUSEA AND VOMITING
     Dosage: 8MG
     Route: 042
     Dates: start: 20171201, end: 20171201
  4. FLUOROURACILE [Suspect]
     Active Substance: FLUOROURACIL
     Dosage: 3300MG,SUR DEUX JOURS
     Route: 042
     Dates: start: 20171201, end: 20171202
  5. FOLINATE DE CALCIUM [Suspect]
     Active Substance: LEUCOVORIN CALCIUM
     Indication: OESOPHAGEAL SQUAMOUS CELL CARCINOMA
     Dosage: 55.2 MG
     Route: 042
     Dates: start: 20171201, end: 20171201
  6. METHYLPREDNISOLONE. [Suspect]
     Active Substance: METHYLPREDNISOLONE
     Indication: ALLERGY PROPHYLAXIS
     Dosage: 120 MG
     Route: 042
     Dates: start: 20171201, end: 20171201

REACTIONS (2)
  - Status epilepticus [Recovered/Resolved]
  - Encephalopathy [Recovered/Resolved]

NARRATIVE: CASE EVENT DATE: 20171202
